FAERS Safety Report 12177755 (Version 3)
Quarter: 2016Q1

REPORT INFORMATION
  Report Type: Report from Study
  Country: NL (occurrence: NL)
  Receive Date: 20160314
  Receipt Date: 20160330
  Transmission Date: 20160526
  Serious: Yes (Life-Threatening, Hospitalization)
  Sender: FDA-Public Use
  Company Number: NL-TEVA-630763ISR

PATIENT
  Age: 65 Year
  Sex: Male

DRUGS (13)
  1. PREDNISOLONE. [Suspect]
     Active Substance: PREDNISOLONE
     Indication: CHEMOTHERAPY
     Dosage: 100 MILLIGRAM DAILY;
     Dates: start: 20160112, end: 20160116
  2. CYCLOPHOSPHAMIDE. [Suspect]
     Active Substance: CYCLOPHOSPHAMIDE
     Indication: CHEMOTHERAPY
     Dosage: 1447 MILLIGRAM DAILY;
     Dates: start: 20160112, end: 20160112
  3. DORMICUM [Concomitant]
     Active Substance: MIDAZOLAM\MIDAZOLAM HYDROCHLORIDE
     Indication: CHEMOTHERAPY
  4. RITUXIMAB [Suspect]
     Active Substance: RITUXIMAB
     Indication: CHEMOTHERAPY
     Dates: start: 20160112, end: 20160112
  5. GANCICLOVIR. [Concomitant]
     Active Substance: GANCICLOVIR
     Indication: CHEMOTHERAPY
     Dosage: 800 MILLIGRAM DAILY;
     Dates: start: 20160112
  6. CIPROXIN [Concomitant]
     Active Substance: CIPROFLOXACIN
     Indication: CHEMOTHERAPY
     Dosage: 1200 MILLIGRAM DAILY;
     Dates: start: 20160112
  7. DOXORUBICIN [Suspect]
     Active Substance: DOXORUBICIN
     Indication: CHEMOTHERAPY
     Dosage: 100 MILLIGRAM DAILY;
     Dates: start: 20160112, end: 20160112
  8. CASPOFUNGINE [Concomitant]
     Indication: CHEMOTHERAPY
     Dosage: 70 MG ON DAY 1 AND THEN 50 MG DAILY
     Dates: start: 20160112
  9. LONQUEX [Suspect]
     Active Substance: LIPEGFILGRASTIM
     Route: 065
     Dates: start: 20160113
  10. FENTANYL. [Concomitant]
     Active Substance: FENTANYL
     Indication: CHEMOTHERAPY
  11. INSUMAN [Concomitant]
     Active Substance: INSULIN HUMAN
     Indication: CHEMOTHERAPY
  12. VINCRISTINE [Suspect]
     Active Substance: VINCRISTINE
     Indication: CHEMOTHERAPY
     Dosage: 2 MILLIGRAM DAILY;
     Dates: start: 20160112, end: 20160112
  13. IMIPENEM/CELASTATINE [Concomitant]
     Indication: CHEMOTHERAPY
     Dosage: 4000 MILLIGRAM DAILY;
     Dates: start: 20160112

REACTIONS (13)
  - Bacteraemia [Recovered/Resolved]
  - Thrombocytopenia [Recovered/Resolved]
  - Blood sodium increased [Recovered/Resolved]
  - Impaired gastric emptying [Recovered/Resolved]
  - Diabetes mellitus [Recovered/Resolved]
  - Pneumonia [Recovered/Resolved]
  - Neutropenia [Recovered/Resolved]
  - Oedema [Recovered/Resolved]
  - Anaemia [Recovered/Resolved]
  - Oedema [Recovered/Resolved]
  - Tachycardia [Recovered/Resolved]
  - Dyspnoea [Recovered/Resolved]
  - Hyperkalaemia [Recovered/Resolved]

NARRATIVE: CASE EVENT DATE: 20160112
